FAERS Safety Report 15867360 (Version 3)
Quarter: 2019Q4

REPORT INFORMATION
  Report Type: Spontaneous
  Country: HR (occurrence: HR)
  Receive Date: 20190125
  Receipt Date: 20191008
  Transmission Date: 20200122
  Serious: Yes (Hospitalization, Other)
  Sender: FDA-Public Use
  Company Number: HR-JNJFOC-20110904470

PATIENT
  Age: 31 Year
  Sex: Female

DRUGS (31)
  1. SERTRALINE [Suspect]
     Active Substance: SERTRALINE HYDROCHLORIDE
     Indication: HEADACHE
     Dosage: 50 MG, DAILY
     Route: 065
     Dates: start: 200904
  2. PIROXICAM. [Suspect]
     Active Substance: PIROXICAM
     Indication: PAIN
     Dosage: 20 MG
     Route: 065
  3. BACLOFEN. [Suspect]
     Active Substance: BACLOFEN
     Dosage: DOSE: 3X10 MG
     Route: 065
     Dates: start: 200709
  4. OXYCODONE HYDROCHLORIDE (SIMILAR TO NDA 22-272) [Suspect]
     Active Substance: OXYCODONE HYDROCHLORIDE
     Dosage: 10 MG, 3X PER DAY
     Route: 065
     Dates: start: 201003
  5. BACLOFEN. [Suspect]
     Active Substance: BACLOFEN
     Dosage: 25 MG, TID
     Route: 065
     Dates: start: 200904
  6. FEXOFENADINE HYDROCHLORIDE. [Suspect]
     Active Substance: FEXOFENADINE HYDROCHLORIDE
     Indication: HEADACHE
     Dosage: 180 MG, UNK
     Route: 065
  7. TRAMADOL. [Concomitant]
     Active Substance: TRAMADOL
     Indication: PAIN
     Dosage: 3 X 37.5 MG
     Route: 065
  8. GINKO BILOBA [Suspect]
     Active Substance: GINKGO
     Indication: RASH
     Dosage: 120 MG, UNK
     Route: 065
  9. NEUROBION FORTE                    /06411001/ [Suspect]
     Active Substance: CYANOCOBALAMIN\PYRIDOXINE\RIBOFLAVIN\THIAMINE
     Dosage: 2X1 TABLET
     Route: 065
  10. GINKO BILOBA [Suspect]
     Active Substance: GINKGO
  11. PREGABALIN. [Suspect]
     Active Substance: PREGABALIN
     Indication: PAIN
     Dosage: DOSE: 2X300 MG
     Route: 065
     Dates: start: 201003
  12. BUPRENORPHINE (SIMILAR TO NDA 21-306) [Suspect]
     Active Substance: BUPRENORPHINE
  13. SERTRALINE [Suspect]
     Active Substance: SERTRALINE HYDROCHLORIDE
     Dosage: 50 MG, DAILY
     Route: 065
     Dates: start: 200805
  14. LEVOTHYROXINE SODIUM. [Suspect]
     Active Substance: LEVOTHYROXINE SODIUM
     Indication: PAIN
  15. GABAPENTIN. [Suspect]
     Active Substance: GABAPENTIN
     Indication: PAIN
     Dosage: 3X300 MG, UNK
     Route: 065
  16. FENTANYL. [Suspect]
     Active Substance: FENTANYL
     Indication: PAIN
     Dosage: 100 UG/72 H, UNK
     Route: 062
     Dates: start: 201003
  17. CARBAMAZEPINE. [Suspect]
     Active Substance: CARBAMAZEPINE
     Indication: PAIN
     Dosage: DOSE: 3X200 MG
     Route: 065
     Dates: start: 200709
  18. BACLOFEN. [Suspect]
     Active Substance: BACLOFEN
     Dosage: 25 MG, TID
     Route: 065
     Dates: start: 201003
  19. DIAZEPAM. [Suspect]
     Active Substance: DIAZEPAM
     Indication: PAIN
     Dosage: DOSE: 2 MG, 2 MG, 5 MG
     Route: 065
     Dates: start: 201003
  20. BACLOFEN. [Suspect]
     Active Substance: BACLOFEN
     Dosage: DOSE: 3X25 MG
     Route: 065
     Dates: start: 200805
  21. FEXOFENADINE HYDROCHLORIDE. [Suspect]
     Active Substance: FEXOFENADINE HYDROCHLORIDE
     Indication: PAIN
  22. GABAPENTIN. [Suspect]
     Active Substance: GABAPENTIN
     Indication: MENTAL DISORDER
     Dosage: 300 MG, DAILY
     Route: 065
     Dates: start: 200904
  23. NEUROBION FORTE                    /06411001/ [Suspect]
     Active Substance: CYANOCOBALAMIN\PYRIDOXINE\RIBOFLAVIN\THIAMINE
  24. PARACETAMOL W/TRAMADOL [Suspect]
     Active Substance: ACETAMINOPHEN\TRAMADOL
     Dosage: 3X2TABS (TRAMADOL 37.5MG,PARACETAMOL 325MG
     Route: 065
     Dates: start: 200709
  25. PARACETAMOL W/TRAMADOL [Suspect]
     Active Substance: ACETAMINOPHEN\TRAMADOL
     Dosage: DOSE: 3X 2 (375/325MG)
     Route: 065
     Dates: start: 200805
  26. PARACETAMOL W/TRAMADOL [Suspect]
     Active Substance: ACETAMINOPHEN\TRAMADOL
     Dosage: 37.5 MG/325MG 2 TABLETS 3 TIMES PER DAY
     Route: 065
     Dates: start: 200904
  27. BUPRENORPHINE. [Suspect]
     Active Substance: BUPRENORPHINE
     Dosage: 70 MCG, Q72H
     Route: 065
     Dates: start: 200904
  28. PANTOPRAZOLE [Suspect]
     Active Substance: PANTOPRAZOLE
     Indication: PRODUCT USED FOR UNKNOWN INDICATION
     Dosage: 20 MG, UNK
     Route: 065
  29. LEVOTHYROXINE SODIUM. [Suspect]
     Active Substance: LEVOTHYROXINE SODIUM
     Dosage: 75 UG
     Route: 065
  30. DIAZEPAM. [Suspect]
     Active Substance: DIAZEPAM
     Dosage: 5 UG, QD
     Route: 065
     Dates: start: 200709
  31. ESOMEPRAZOL                        /01479301/ [Suspect]
     Active Substance: ESOMEPRAZOLE
     Indication: ASTHENIA
     Dosage: 2X20 MG
     Route: 065
     Dates: start: 201003

REACTIONS (33)
  - Euphoric mood [Unknown]
  - Fatigue [Unknown]
  - Nausea [Unknown]
  - Drug ineffective [Unknown]
  - Persistent depressive disorder [Unknown]
  - Schizophrenia [Unknown]
  - Drug interaction [Unknown]
  - Oedema [Unknown]
  - Loss of consciousness [Unknown]
  - Headache [Unknown]
  - Musculoskeletal stiffness [Unknown]
  - Sedation [Unknown]
  - Erythema [Unknown]
  - Neurosis [Unknown]
  - Condition aggravated [Unknown]
  - Pain [Unknown]
  - Diplopia [Unknown]
  - Disturbance in attention [Unknown]
  - Asthenia [Unknown]
  - Pruritus [Unknown]
  - Cognitive disorder [Unknown]
  - Gastrointestinal motility disorder [Unknown]
  - Confusional state [Unknown]
  - Quadriparesis [Unknown]
  - Sensory disturbance [Unknown]
  - Feeling abnormal [Unknown]
  - Psychomotor skills impaired [Unknown]
  - Syncope [Unknown]
  - Dizziness [Unknown]
  - Vomiting [Unknown]
  - Anxiety [Unknown]
  - Constipation [Unknown]
  - Depression [Unknown]
